FAERS Safety Report 24900816 (Version 1)
Quarter: 2025Q1

REPORT INFORMATION
  Report Type: Spontaneous
  Country: US (occurrence: None)
  Receive Date: 20250129
  Receipt Date: 20250129
  Transmission Date: 20250409
  Serious: Yes (Other)
  Sender: USAntibiotics
  Company Number: US-USAntibiotics-000390

PATIENT
  Age: 18 Year
  Sex: Female

DRUGS (2)
  1. AUGMENTIN [Suspect]
     Active Substance: AMOXICILLIN\CLAVULANATE POTASSIUM
     Indication: Pneumonia
     Dosage: 10 MILLILITER, BID
  2. DAYBUE [Suspect]
     Active Substance: TROFINETIDE
     Indication: Rett syndrome
     Dosage: 50 MILLITER, BID

REACTIONS (2)
  - Pneumonia [Recovered/Resolved]
  - Diarrhoea [Recovered/Resolved]
